FAERS Safety Report 10338773 (Version 2)
Quarter: 2014Q3

REPORT INFORMATION
  Report Type: Spontaneous
  Country: US (occurrence: US)
  Receive Date: 20140724
  Receipt Date: 20140918
  Transmission Date: 20150326
  Serious: Yes (Life-Threatening, Hospitalization)
  Sender: FDA-Public Use
  Company Number: US-BAYER-2014-109468

PATIENT
  Age: 25 Year
  Sex: Female

DRUGS (2)
  1. MIRENA [Suspect]
     Active Substance: LEVONORGESTREL
     Indication: CONTRACEPTION
     Dosage: 20 MCG/24HR, CONT
     Route: 015
     Dates: start: 20121108, end: 20130703
  2. SPRINTEC [Concomitant]
     Active Substance: ETHINYL ESTRADIOL\NORGESTIMATE

REACTIONS (13)
  - Uterine perforation [None]
  - Medical device discomfort [None]
  - Device issue [None]
  - General physical health deterioration [None]
  - Abdominal pain [None]
  - Medical device pain [None]
  - Infection [None]
  - Anxiety [None]
  - Injury [None]
  - Procedural pain [None]
  - Scar [None]
  - Anhedonia [None]
  - Emotional distress [None]

NARRATIVE: CASE EVENT DATE: 201307
